FAERS Safety Report 8957728 (Version 2)
Quarter: 2013Q1

REPORT INFORMATION
  Report Type: Spontaneous
  Country: US (occurrence: US)
  Receive Date: 20121211
  Receipt Date: 20130110
  Transmission Date: 20140127
  Serious: No
  Sender: FDA-Public Use
  Company Number: US-PFIZER INC-2012308446

PATIENT
  Age: 52 Year
  Sex: Female
  Weight: 61.68 kg

DRUGS (5)
  1. CELEBREX [Suspect]
     Indication: ARTHRITIS
     Dosage: 200 MG, 2X/DAY
     Route: 048
     Dates: start: 2012
  2. LYRICA [Concomitant]
     Indication: FIBROMYALGIA
     Dosage: UNK
  3. ZOLOFT [Concomitant]
     Dosage: UNK
  4. TRAMADOL [Concomitant]
     Dosage: UNK
  5. FAMCICLOVIR [Concomitant]
     Dosage: UNK, AS NEEDED

REACTIONS (2)
  - Constipation [Recovered/Resolved]
  - Malaise [Not Recovered/Not Resolved]
